FAERS Safety Report 10993988 (Version 2)
Quarter: 2020Q1

REPORT INFORMATION
  Report Type: Spontaneous
  Country: US (occurrence: US)
  Receive Date: 20150407
  Receipt Date: 20200313
  Transmission Date: 20200409
  Serious: Yes (Death, Other)
  Sender: FDA-Public Use
  Company Number: US-ASTRAZENECA-2015SE03828

PATIENT
  Age: 70 Year
  Sex: Female
  Weight: 66.7 kg

DRUGS (35)
  1. BYETTA [Suspect]
     Active Substance: EXENATIDE
     Indication: PRODUCT USED FOR UNKNOWN INDICATION
     Dosage: 10 MCG/0.04 ML
     Route: 065
     Dates: start: 20071102, end: 20081102
  2. NOVOLOG [Concomitant]
     Active Substance: INSULIN ASPART
  3. CARISOPRODOL. [Concomitant]
     Active Substance: CARISOPRODOL
  4. TRAMADOL. [Concomitant]
     Active Substance: TRAMADOL
  5. METFORMIN [Concomitant]
     Active Substance: METFORMIN HYDROCHLORIDE
  6. GABAPENTIN. [Concomitant]
     Active Substance: GABAPENTIN
  7. VICTOZA [Suspect]
     Active Substance: LIRAGLUTIDE
     Indication: PRODUCT USED FOR UNKNOWN INDICATION
     Route: 065
     Dates: start: 20110315, end: 201111
  8. MAGNESIUM OXIDE. [Concomitant]
     Active Substance: MAGNESIUM OXIDE
  9. BYETTA [Suspect]
     Active Substance: EXENATIDE
     Indication: PRODUCT USED FOR UNKNOWN INDICATION
     Route: 065
     Dates: start: 20071102, end: 201103
  10. WARFARIN [Concomitant]
     Active Substance: WARFARIN
  11. HYDROCODONE [Concomitant]
     Active Substance: HYDROCODONE
  12. BYETTA [Suspect]
     Active Substance: EXENATIDE
     Indication: PRODUCT USED FOR UNKNOWN INDICATION
     Route: 065
     Dates: start: 20100629, end: 20110315
  13. VICTOZA [Suspect]
     Active Substance: LIRAGLUTIDE
     Indication: PRODUCT USED FOR UNKNOWN INDICATION
     Route: 065
     Dates: start: 20110315, end: 20110822
  14. JANUMET [Suspect]
     Active Substance: METFORMIN HYDROCHLORIDE\SITAGLIPTIN PHOSPHATE
     Dosage: 50-1000 MG
     Route: 065
     Dates: start: 20070710, end: 200710
  15. FENOFIBRATE. [Concomitant]
     Active Substance: FENOFIBRATE
  16. PRADAXA [Concomitant]
     Active Substance: DABIGATRAN ETEXILATE MESYLATE
  17. CIPROFLOXACIN. [Concomitant]
     Active Substance: CIPROFLOXACIN
  18. LIDOCAINE. [Concomitant]
     Active Substance: LIDOCAINE
  19. FUROSEMIDE. [Concomitant]
     Active Substance: FUROSEMIDE
  20. DICLOFENAC SODIUM. [Concomitant]
     Active Substance: DICLOFENAC SODIUM
  21. BYETTA [Suspect]
     Active Substance: EXENATIDE
     Indication: PRODUCT USED FOR UNKNOWN INDICATION
     Dosage: 10 MCG/0.04 ML
     Route: 065
     Dates: start: 20090123, end: 201103
  22. BYETTA [Suspect]
     Active Substance: EXENATIDE
     Indication: PRODUCT USED FOR UNKNOWN INDICATION
     Dosage: 10 MCG/0.04 ML
     Route: 065
     Dates: start: 20120215, end: 201205
  23. DIGOXIN. [Concomitant]
     Active Substance: DIGOXIN
  24. ATENOLOL. [Concomitant]
     Active Substance: ATENOLOL
  25. ADVAIR HFA [Concomitant]
     Active Substance: FLUTICASONE PROPIONATE\SALMETEROL XINAFOATE
  26. ACYCLOVIR. [Concomitant]
     Active Substance: ACYCLOVIR
  27. ALPRAZOLAM. [Concomitant]
     Active Substance: ALPRAZOLAM
  28. SPIRONOLACTONE. [Concomitant]
     Active Substance: SPIRONOLACTONE
  29. BYETTA [Suspect]
     Active Substance: EXENATIDE
     Indication: PRODUCT USED FOR UNKNOWN INDICATION
     Route: 065
     Dates: start: 20120215, end: 20120507
  30. LEVEMIR [Concomitant]
     Active Substance: INSULIN DETEMIR
  31. PREDNISONE. [Concomitant]
     Active Substance: PREDNISONE
  32. POTASSIUM CHLORIDE. [Concomitant]
     Active Substance: POTASSIUM CHLORIDE
  33. FEXOFENADINE [Concomitant]
     Active Substance: FEXOFENADINE HYDROCHLORIDE
  34. DIAZEPAM. [Concomitant]
     Active Substance: DIAZEPAM
  35. ZETIA [Concomitant]
     Active Substance: EZETIMIBE

REACTIONS (4)
  - Pancreatic carcinoma [Fatal]
  - Sepsis [Fatal]
  - Cholangitis [Fatal]
  - Adenocarcinoma pancreas [Unknown]

NARRATIVE: CASE EVENT DATE: 2007
